FAERS Safety Report 20145462 (Version 1)
Quarter: 2021Q4

REPORT INFORMATION
  Report Type: Spontaneous
  Country: UM (occurrence: UM)
  Receive Date: 20211203
  Receipt Date: 20211203
  Transmission Date: 20220304
  Serious: Yes (Other)
  Sender: FDA-Public Use
  Company Number: UM-PFIZER INC-202101642007

PATIENT
  Age: 3 Year
  Sex: Female

DRUGS (1)
  1. VISTARIL [Suspect]
     Active Substance: HYDROXYZINE PAMOATE
     Dosage: UNK
     Route: 064

REACTIONS (10)
  - Maternal exposure during pregnancy [Unknown]
  - Premature baby [Unknown]
  - Heart disease congenital [Unknown]
  - PHACES syndrome [Unknown]
  - Growth retardation [Unknown]
  - Cerebrovascular accident [Unknown]
  - Seizure [Unknown]
  - Brain injury [Unknown]
  - Intracranial aneurysm [Unknown]
  - Illness [Unknown]
